FAERS Safety Report 14331210 (Version 2)
Quarter: 2018Q1

REPORT INFORMATION
  Report Type: Report from Study
  Country: CA (occurrence: CA)
  Receive Date: 20171228
  Receipt Date: 20180208
  Transmission Date: 20180509
  Serious: Yes (Other)
  Sender: FDA-Public Use
  Company Number: CA-AMGEN-CANSL2017189971

PATIENT
  Age: 66 Year
  Sex: Female
  Weight: 56.24 kg

DRUGS (3)
  1. PROLIA [Suspect]
     Active Substance: DENOSUMAB
     Dosage: UNK
     Route: 065
     Dates: start: 20171120
  2. GLUCOSAMINE [Concomitant]
     Active Substance: GLUCOSAMINE
  3. PROLIA [Suspect]
     Active Substance: DENOSUMAB
     Indication: OSTEOPOROSIS POSTMENOPAUSAL
     Dosage: 60 MG/ML,
     Route: 065
     Dates: start: 20140505

REACTIONS (7)
  - Hypercalcaemia [Not Recovered/Not Resolved]
  - Parathyroidectomy [Unknown]
  - Blood parathyroid hormone increased [Not Recovered/Not Resolved]
  - Urine calcium increased [Not Recovered/Not Resolved]
  - Blood creatinine decreased [Unknown]
  - Tooth disorder [Not Recovered/Not Resolved]
  - Dental implantation [Unknown]

NARRATIVE: CASE EVENT DATE: 201602
